FAERS Safety Report 4401306-2 (Version None)
Quarter: 2004Q3

REPORT INFORMATION
  Report Type: 
  Country: None (occurrence: None)
  Receive Date: 20040907
  Receipt Date: 20040224
  Transmission Date: 20050211
  Serious: No
  Sender: FDA-Public Use
  Company Number: US-BRISTOL-MYERS SQUIBB COMPANY-12515847

PATIENT
  Age: 5 Decade
  Sex: Female
  Weight: 59 kg

DRUGS (1)
  1. COUMADIN [Suspect]
     Indication: TRANSIENT ISCHAEMIC ATTACK
     Dosage: 7.5 - 10MG DAILY
     Route: 048
     Dates: start: 20031201

REACTIONS (1)
  - INTERNATIONAL NORMALISED RATIO ABNORMAL [None]
